FAERS Safety Report 13299522 (Version 1)
Quarter: 2017Q1

REPORT INFORMATION
  Report Type: Spontaneous
  Country: DE (occurrence: DE)
  Receive Date: 20170306
  Receipt Date: 20170306
  Transmission Date: 20170428
  Serious: Yes (Other)
  Sender: FDA-Public Use
  Company Number: DE-PFIZER INC-2017088773

PATIENT
  Age: 59 Year
  Sex: Male

DRUGS (5)
  1. SERTRALIN PFIZER [Suspect]
     Active Substance: SERTRALINE HYDROCHLORIDE
     Dosage: 200 MG, 1X/DAY
     Route: 048
     Dates: end: 201604
  2. ARIPIPRAZOLE. [Suspect]
     Active Substance: ARIPIPRAZOLE
     Indication: SCHIZOPHRENIA
     Dosage: 20 MG, 1X/DAY
     Route: 048
     Dates: start: 201512, end: 201604
  3. GLIANIMON [Suspect]
     Active Substance: BENPERIDOL
     Dosage: 1 DF, 1X/DAY
     Route: 048
     Dates: end: 201604
  4. FLUANXOL DEPOT [Suspect]
     Active Substance: FLUPENTIXOL DECANOATE
     Indication: SCHIZOPHRENIA
     Dosage: 40 MG, UNK (EVERY 2 WEEKS)
     Route: 030
     Dates: end: 201604
  5. AKINETON [Suspect]
     Active Substance: BIPERIDEN HYDROCHLORIDE
     Dosage: 1 DF, 1X/DAY
     Route: 048
     Dates: end: 201604

REACTIONS (2)
  - Disease recurrence [Not Recovered/Not Resolved]
  - Hallucination, auditory [Not Recovered/Not Resolved]

NARRATIVE: CASE EVENT DATE: 201604
